FAERS Safety Report 20637989 (Version 1)
Quarter: 2022Q1

REPORT INFORMATION
  Report Type: Spontaneous
  Country: CH (occurrence: CH)
  Receive Date: 20220325
  Receipt Date: 20220325
  Transmission Date: 20220423
  Serious: Yes (Hospitalization)
  Sender: FDA-Public Use
  Company Number: CH-ELI_LILLY_AND_COMPANY-CH202203007198

PATIENT
  Age: 73 Year
  Sex: Female

DRUGS (2)
  1. DULOXETINE HYDROCHLORIDE [Interacting]
     Active Substance: DULOXETINE HYDROCHLORIDE
     Indication: Depression
     Dosage: 60 MG, DAILY
     Route: 048
  2. CIPROFLOXACIN [Interacting]
     Active Substance: CIPROFLOXACIN
     Indication: Product used for unknown indication
     Dosage: 400 MG, BID
     Route: 042

REACTIONS (7)
  - Urinary tract infection [Recovered/Resolved]
  - Large intestinal stenosis [Recovered/Resolved]
  - Ileus paralytic [Recovered/Resolved]
  - Peritonitis [Recovered/Resolved]
  - Septic shock [Recovered/Resolved]
  - Neurological decompensation [Recovered/Resolved]
  - Drug interaction [Recovered/Resolved]
